FAERS Safety Report 10356393 (Version 1)
Quarter: 2014Q3

REPORT INFORMATION
  Report Type: Spontaneous
  Country: DE (occurrence: DE)
  Receive Date: 20140801
  Receipt Date: 20140801
  Transmission Date: 20150326
  Serious: Yes (Other)
  Sender: FDA-Public Use
  Company Number: DE-ACCORD-025061

PATIENT
  Age: 38 Year
  Sex: Female

DRUGS (6)
  1. GEMCITABINE/GEMCITABINE HYDROCHLORIDE [Suspect]
     Active Substance: GEMCITABINE\GEMCITABINE HYDROCHLORIDE
     Indication: CHOLANGIOCARCINOMA
     Dosage: APPLICATION OF DAY 8 GEMCITABINE OF CYCLE 2 WAS DELAYED BY 1 WEEK DUE TO LEUKOCYTOPENIA
  2. FLUOROURACIL. [Concomitant]
     Active Substance: FLUOROURACIL
     Indication: METASTASES TO LUNG
     Dosage: SECOND-LINE CHEMOTHERAPY
  3. PACLITAXEL/PACLITAXEL LIPOSOME [Suspect]
     Active Substance: PACLITAXEL
     Indication: CHOLANGIOCARCINOMA
     Dosage: THIRD LINE THERAPY
  4. CISPLATIN. [Suspect]
     Active Substance: CISPLATIN
     Indication: CHOLANGIOCARCINOMA
     Dosage: RECEIVED ON DAY 1.
  5. OXALIPLATIN. [Concomitant]
     Active Substance: OXALIPLATIN
     Indication: METASTASES TO LUNG
     Dosage: SECOND-LINE CHEMOTHERAPY
  6. FOLIC ACID. [Concomitant]
     Active Substance: FOLIC ACID
     Indication: METASTASES TO LUNG
     Dosage: SECOND-LINE CHEMOTHERAPY

REACTIONS (4)
  - Leukopenia [Unknown]
  - Off label use [Unknown]
  - Exposure during pregnancy [Unknown]
  - Polyneuropathy [Unknown]
